FAERS Safety Report 9984360 (Version 1)
Quarter: 2014Q1

REPORT INFORMATION
  Report Type: Spontaneous
  Country: US (occurrence: US)
  Receive Date: 20140307
  Receipt Date: 20140307
  Transmission Date: 20141002
  Serious: No
  Sender: FDA-Public Use
  Company Number: US-ABBVIE-13P-163-1182915-00

PATIENT
  Age: 32 Year
  Sex: Female

DRUGS (19)
  1. HUMIRA [Suspect]
     Indication: CROHN^S DISEASE
     Dates: start: 20131209, end: 20131209
  2. HUMIRA [Suspect]
     Indication: COLITIS ULCERATIVE
     Dates: start: 20131214, end: 20131214
  3. HUMIRA [Suspect]
     Dates: start: 20131223, end: 20131223
  4. HUMIRA [Suspect]
  5. FISH OIL [Concomitant]
     Indication: PRODUCT USED FOR UNKNOWN INDICATION
  6. MULTIVITAMIN [Concomitant]
     Indication: PRODUCT USED FOR UNKNOWN INDICATION
  7. VITAMIN D [Concomitant]
     Indication: PRODUCT USED FOR UNKNOWN INDICATION
  8. PROBIOTIC [Concomitant]
     Indication: PRODUCT USED FOR UNKNOWN INDICATION
  9. ENZYMES [Concomitant]
     Indication: PRODUCT USED FOR UNKNOWN INDICATION
  10. VALERIAN [Concomitant]
     Indication: INSOMNIA
     Dosage: AT BEDTIME
  11. GINGER [Concomitant]
     Indication: ANTIINFLAMMATORY THERAPY
  12. TUMERIC [Concomitant]
     Indication: ANTIINFLAMMATORY THERAPY
  13. GREEN COFFEE [Concomitant]
     Indication: WEIGHT CONTROL
  14. RASPBERRY KETONES [Concomitant]
     Indication: WEIGHT CONTROL
  15. TONALIN CLA [Concomitant]
     Indication: WEIGHT CONTROL
  16. PROTEIN SHAKES [Concomitant]
     Indication: PRODUCT USED FOR UNKNOWN INDICATION
  17. FLAX OIL [Concomitant]
     Indication: PRODUCT USED FOR UNKNOWN INDICATION
  18. VITAMIN B12 [Concomitant]
     Indication: PRODUCT USED FOR UNKNOWN INDICATION
     Dosage: WHEN THE PATIENT REMEMBERS
  19. QUERCETIN [Concomitant]
     Indication: HYPERSENSITIVITY

REACTIONS (9)
  - Incorrect dose administered [Not Recovered/Not Resolved]
  - Incorrect dose administered [Unknown]
  - Injection site pain [Not Recovered/Not Resolved]
  - Injection site bruising [Recovered/Resolved]
  - Erythema [Unknown]
  - Malaise [Recovered/Resolved]
  - Injection site haemorrhage [Unknown]
  - Device issue [Unknown]
  - Fatigue [Recovering/Resolving]
